FAERS Safety Report 12207210 (Version 1)
Quarter: 2016Q1

REPORT INFORMATION
  Report Type: Spontaneous
  Country: US (occurrence: None)
  Receive Date: 20160323
  Receipt Date: 20160323
  Transmission Date: 20160526
  Serious: Yes (Hospitalization)
  Sender: FDA-Public Use
  Company Number: None

PATIENT
  Age: 65 Year
  Sex: Male

DRUGS (12)
  1. MYCOPHENOLATE [Concomitant]
     Active Substance: MYCOPHENOLIC ACID
  2. GABAPENTIN. [Suspect]
     Active Substance: GABAPENTIN
     Route: 048
  3. ENOXAPARIN [Concomitant]
     Active Substance: ENOXAPARIN
  4. SULFAMETHOXAZOLE/TRIMETHOPRIM [Concomitant]
     Active Substance: SULFAMETHOXAZOLE\TRIMETHOPRIM
  5. VORICONAZOLE. [Suspect]
     Active Substance: VORICONAZOLE
     Indication: PNEUMONIA
     Route: 048
     Dates: start: 20160220, end: 20160222
  6. TRAZODONE [Concomitant]
     Active Substance: TRAZODONE HYDROCHLORIDE
  7. AMIODARONE [Concomitant]
     Active Substance: AMIODARONE
  8. ASPIRIN. [Concomitant]
     Active Substance: ASPIRIN
  9. FUROSEMIDE. [Concomitant]
     Active Substance: FUROSEMIDE
  10. PREDNISONE. [Concomitant]
     Active Substance: PREDNISONE
  11. TACROLIMUS. [Concomitant]
     Active Substance: TACROLIMUS
  12. VALGANCICLOVIR [Concomitant]
     Active Substance: VALGANCICLOVIR

REACTIONS (7)
  - Dysarthria [None]
  - Confusional state [None]
  - Hallucinations, mixed [None]
  - Fatigue [None]
  - Dizziness [None]
  - Mental status changes [None]
  - Hypotension [None]

NARRATIVE: CASE EVENT DATE: 20160222
